FAERS Safety Report 7029232-3 (Version None)
Quarter: 2010Q4

REPORT INFORMATION
  Report Type: 
  Country: None (occurrence: None)
  Receive Date: 20101005
  Receipt Date: 20100923
  Transmission Date: 20110411
  Serious: Yes (Life-Threatening)
  Sender: FDA-Public Use
  Company Number: RU-SANOFI-AVENTIS-2010SA050070

PATIENT
  Age: 50 Year
  Sex: Male
  Weight: 83 kg

DRUGS (5)
  1. PLAVIX [Suspect]
     Indication: MYOCARDIAL INFARCTION
     Route: 048
     Dates: start: 20091201, end: 20100730
  2. ASPIRIN [Suspect]
     Indication: MYOCARDIAL INFARCTION
     Route: 065
     Dates: start: 20091201, end: 20100730
  3. ATORVASTATIN [Concomitant]
     Indication: MYOCARDIAL INFARCTION
     Route: 048
     Dates: start: 20091201
  4. PRESTARIUM [Concomitant]
     Indication: MYOCARDIAL INFARCTION
     Route: 048
     Dates: start: 20091201
  5. CORDARONE [Concomitant]
     Indication: WOLFF-PARKINSON-WHITE SYNDROME
     Route: 048
     Dates: start: 20091201

REACTIONS (4)
  - CHEST PAIN [None]
  - CORONARY ARTERY STENOSIS [None]
  - DRUG INEFFECTIVE [None]
  - MYOCARDIAL INFARCTION [None]
